FAERS Safety Report 12311522 (Version 1)
Quarter: 2016Q2

REPORT INFORMATION
  Report Type: Spontaneous
  Country: US (occurrence: US)
  Receive Date: 20160427
  Receipt Date: 20160427
  Transmission Date: 20160815
  Serious: Yes (Other)
  Sender: FDA-Public Use
  Company Number: US-ELI_LILLY_AND_COMPANY-US201604005928

PATIENT
  Age: 79 Year
  Sex: Male

DRUGS (2)
  1. CYRAMZA [Suspect]
     Active Substance: RAMUCIRUMAB
     Indication: GASTROOESOPHAGEAL CANCER
     Dosage: UNK, UNKNOWN
     Route: 065
  2. TAXOL [Concomitant]
     Active Substance: PACLITAXEL
     Indication: GASTROOESOPHAGEAL CANCER
     Dosage: UNK, UNKNOWN
     Route: 065

REACTIONS (5)
  - Chest pain [Unknown]
  - Dyspnoea [Unknown]
  - Off label use [Unknown]
  - Loss of consciousness [Recovered/Resolved]
  - Wheezing [Unknown]
